FAERS Safety Report 17702158 (Version 2)
Quarter: 2020Q2

REPORT INFORMATION
  Report Type: Spontaneous
  Country: CN (occurrence: CN)
  Receive Date: 20200424
  Receipt Date: 20200430
  Transmission Date: 20200714
  Serious: Yes (Other)
  Sender: FDA-Public Use
  Company Number: CN-ROCHE-2586479

PATIENT
  Age: 46 Year
  Sex: Female

DRUGS (16)
  1. DEXAMETHASONE. [Concomitant]
     Active Substance: DEXAMETHASONE
     Indication: MANTLE CELL LYMPHOMA
     Route: 065
     Dates: start: 20200308
  2. LIPOSOMAL DOXORUBICIN HYDROCHLORIDE [Concomitant]
     Active Substance: DOXORUBICIN HYDROCHLORIDE
     Indication: MANTLE CELL LYMPHOMA
     Route: 065
     Dates: start: 20190715
  3. VINDESINE [Concomitant]
     Active Substance: VINDESINE
     Indication: MANTLE CELL LYMPHOMA
     Route: 065
     Dates: start: 20190715
  4. IBRUTINIB [Concomitant]
     Active Substance: IBRUTINIB
     Indication: MANTLE CELL LYMPHOMA
     Route: 065
     Dates: start: 20190819
  5. MABTHERA [Suspect]
     Active Substance: RITUXIMAB
     Indication: MANTLE CELL LYMPHOMA
     Route: 065
     Dates: start: 20190715
  6. CYCLOPHOSPHAMIDE. [Concomitant]
     Active Substance: CYCLOPHOSPHAMIDE
     Route: 065
     Dates: start: 20200308
  7. BORTEZOMIB. [Concomitant]
     Active Substance: BORTEZOMIB
     Indication: MANTLE CELL LYMPHOMA
     Route: 065
     Dates: start: 20200308
  8. DOXORUBICIN [Concomitant]
     Active Substance: DOXORUBICIN
     Indication: MANTLE CELL LYMPHOMA
     Dosage: 10MG D1, 10MG D2, 5MG D3
     Route: 065
     Dates: start: 20200308
  9. MABTHERA [Suspect]
     Active Substance: RITUXIMAB
     Route: 065
     Dates: start: 20190819
  10. IBRUTINIB [Concomitant]
     Active Substance: IBRUTINIB
     Route: 065
     Dates: start: 20200308
  11. MABTHERA [Suspect]
     Active Substance: RITUXIMAB
     Route: 065
     Dates: start: 20200308
  12. VELPATASVIR [Concomitant]
     Active Substance: VELPATASVIR
     Indication: HEPATIC CIRRHOSIS
  13. CYCLOPHOSPHAMIDE. [Concomitant]
     Active Substance: CYCLOPHOSPHAMIDE
     Indication: MANTLE CELL LYMPHOMA
     Route: 065
     Dates: start: 20190715
  14. IBRUTINIB [Concomitant]
     Active Substance: IBRUTINIB
     Route: 065
     Dates: start: 20200201
  15. PREDNISONE. [Concomitant]
     Active Substance: PREDNISONE
     Indication: MANTLE CELL LYMPHOMA
     Route: 065
     Dates: start: 20190715
  16. SOFOSBUVIR [Concomitant]
     Active Substance: SOFOSBUVIR
     Indication: HEPATIC CIRRHOSIS

REACTIONS (13)
  - Gastrointestinal disorder [Recovering/Resolving]
  - Myalgia [Unknown]
  - Rash [Unknown]
  - Intentional product use issue [Unknown]
  - Petechiae [Unknown]
  - Bone pain [Unknown]
  - Agranulocytosis [Unknown]
  - Platelet count decreased [Unknown]
  - Off label use [Unknown]
  - Small intestinal obstruction [Unknown]
  - Pulmonary mycosis [Unknown]
  - Hypoaesthesia [Unknown]
  - Splenomegaly [Unknown]
